FAERS Safety Report 16010848 (Version 1)
Quarter: 2019Q1

REPORT INFORMATION
  Report Type: Report from Study
  Country: FR (occurrence: FR)
  Receive Date: 20190227
  Receipt Date: 20190227
  Transmission Date: 20190418
  Serious: Yes (Other)
  Sender: FDA-Public Use
  Company Number: FR-HBP-2019FR018407

PATIENT
  Age: 79 Year
  Sex: Male

DRUGS (4)
  1. VALCHLOR [Suspect]
     Active Substance: MECHLORETHAMINE
     Dosage: UNK, 2/WEEK
     Route: 003
     Dates: start: 20180716, end: 20190114
  2. VALCHLOR [Suspect]
     Active Substance: MECHLORETHAMINE
     Dosage: UNK, 3/WEEK
     Route: 003
     Dates: start: 20190114
  3. DERMOVAL                           /00008501/ [Concomitant]
     Active Substance: CLOBETASOL PROPIONATE
  4. VALCHLOR [Suspect]
     Active Substance: MECHLORETHAMINE
     Indication: MYCOSIS FUNGOIDES
     Dosage: UNK, 3/WEEK
     Route: 003
     Dates: start: 201711, end: 20180716

REACTIONS (3)
  - Skin burning sensation [Not Recovered/Not Resolved]
  - Therapy partial responder [Unknown]
  - Mycosis fungoides recurrent [Unknown]

NARRATIVE: CASE EVENT DATE: 20180716
